FAERS Safety Report 12247264 (Version 1)
Quarter: 2016Q2

REPORT INFORMATION
  Report Type: Spontaneous
  Country: US (occurrence: US)
  Receive Date: 20160407
  Receipt Date: 20160407
  Transmission Date: 20160815
  Serious: Yes (Hospitalization)
  Sender: FDA-Public Use
  Company Number: US-HLSUS-2016-US-000201

PATIENT
  Age: 59 Year
  Sex: Male

DRUGS (3)
  1. CLOZARIL [Suspect]
     Active Substance: CLOZAPINE
     Indication: SCHIZOAFFECTIVE DISORDER
     Dosage: 200 MG AM 200 MG PM 400 MG HS
     Dates: end: 201603
  2. LITHIUM. [Concomitant]
     Active Substance: LITHIUM
     Dosage: 200 MG
  3. DEPAKOTE [Concomitant]
     Active Substance: DIVALPROEX SODIUM
     Dosage: 800 MG

REACTIONS (6)
  - Catatonia [Not Recovered/Not Resolved]
  - Infection [Not Recovered/Not Resolved]
  - Renal failure [Recovered/Resolved]
  - Myocardial infarction [Recovered/Resolved]
  - Intestinal obstruction [Recovered/Resolved]
  - Pyrexia [Not Recovered/Not Resolved]

NARRATIVE: CASE EVENT DATE: 201603
